FAERS Safety Report 5130048-3 (Version None)
Quarter: 2006Q4

REPORT INFORMATION
  Report Type: 
  Country: None (occurrence: None)
  Receive Date: 20061012
  Receipt Date: 20061004
  Transmission Date: 20070319
  Serious: Yes (Hospitalization)
  Sender: FDA-Public Use
  Company Number: GXKT2006GB06205

PATIENT
  Age: 75 Year
  Sex: Female

DRUGS (13)
  1. WARFARIN SODIUM [Suspect]
     Indication: ATRIAL FIBRILLATION
     Dosage: ORAL
     Route: 048
     Dates: start: 20060811
  2. CRANBERRY JUICE [Suspect]
     Indication: CYSTITIS
     Dosage: ORAL
     Route: 048
     Dates: end: 20060821
  3. ASPIRIN [Concomitant]
  4. AZATHIOPRINE [Concomitant]
  5. BISOPROLOL FUMARATE [Concomitant]
  6. CALCICHEW (CALCIUM CARBONATE) [Concomitant]
  7. METFORMIN HCL [Concomitant]
  8. OMEPRAZOLE [Concomitant]
  9. OXYBUTYNIN CHLORIDE [Concomitant]
  10. PERINDOPRIL ERBUMINE [Concomitant]
  11. PREDNISOLONE [Concomitant]
  12. SIMVASTATIN [Concomitant]
  13. TERAZOSIN HCL [Concomitant]

REACTIONS (4)
  - FOOD INTERACTION [None]
  - INCORRECT DOSE ADMINISTERED [None]
  - INTERNATIONAL NORMALISED RATIO INCREASED [None]
  - VOMITING [None]
